FAERS Safety Report 7201806-6 (Version None)
Quarter: 2010Q4

REPORT INFORMATION
  Report Type: 
  Country: None (occurrence: None)
  Receive Date: 20101229
  Receipt Date: 20101108
  Transmission Date: 20110411
  Serious: Yes (Other)
  Sender: FDA-Public Use
  Company Number: UA-BAYER-201011114NA

PATIENT
  Sex: Female
  Weight: 86 kg

DRUGS (6)
  1. YASMIN [Suspect]
     Indication: ORAL CONTRACEPTION
     Route: 048
     Dates: start: 19990101, end: 20080615
  2. YAZ [Suspect]
     Indication: PRODUCT USED FOR UNKNOWN INDICATION
     Route: 048
     Dates: start: 20000101, end: 20080515
  3. XANAX [Concomitant]
     Dates: start: 20080101, end: 20100615
  4. ZOLOFT [Concomitant]
     Dates: start: 20080101, end: 20100615
  5. SPRINTEC [Concomitant]
     Indication: ORAL CONTRACEPTION
     Route: 048
     Dates: start: 20080101, end: 20100615
  6. ORTHO CYCLEN-28 [Concomitant]

REACTIONS (7)
  - ANXIETY [None]
  - GALLBLADDER DISORDER [None]
  - INJURY [None]
  - LOSS OF CONSCIOUSNESS [None]
  - MENTAL DISORDER [None]
  - PAIN [None]
  - ROAD TRAFFIC ACCIDENT [None]
